FAERS Safety Report 14344336 (Version 3)
Quarter: 2021Q4

REPORT INFORMATION
  Report Type: Report from Study
  Country: FR (occurrence: FR)
  Receive Date: 20180102
  Receipt Date: 20211020
  Transmission Date: 20220303
  Serious: Yes (Other)
  Sender: FDA-Public Use
  Company Number: FR-SHIRE-FR201729844

PATIENT
  Sex: Male

DRUGS (17)
  1. METHOTREXATE [Suspect]
     Active Substance: METHOTREXATE
     Indication: Acute lymphocytic leukaemia
     Dosage: 12 MG, UNK
     Route: 037
     Dates: start: 20171027, end: 20171027
  2. METHOTREXATE [Suspect]
     Active Substance: METHOTREXATE
     Dosage: 12 MG, UNK
     Route: 037
     Dates: start: 20170822, end: 20170918
  3. MITOXANTRONE [Suspect]
     Active Substance: MITOXANTRONE HYDROCHLORIDE
     Indication: Acute lymphocytic leukaemia
     Dosage: 8 MG, UNK
     Route: 042
     Dates: start: 20171025, end: 20171026
  4. DEXAMETHASONE [Suspect]
     Active Substance: DEXAMETHASONE
     Indication: Acute lymphocytic leukaemia
     Dosage: 10 MG, UNK
     Route: 048
     Dates: start: 20171028, end: 20171028
  5. DEXAMETHASONE [Suspect]
     Active Substance: DEXAMETHASONE
     Dosage: 20 MG, UNK
     Route: 048
     Dates: start: 20171023, end: 20171027
  6. HYDROCORTISONE [Suspect]
     Active Substance: HYDROCORTISONE
     Indication: Acute lymphocytic leukaemia
     Dosage: 15 MG, UNK
     Route: 037
     Dates: start: 20170822, end: 20170918
  7. CYCLOPHOSPHAMIDE [Suspect]
     Active Substance: CYCLOPHOSPHAMIDE
     Indication: Acute lymphocytic leukaemia
     Dosage: 960 MG, UNK
     Route: 042
     Dates: start: 20170811, end: 20170916
  8. PEGASPARGASE [Suspect]
     Active Substance: PEGASPARGASE
     Indication: Acute lymphocytic leukaemia
     Dosage: 2400 IU, UNK
     Route: 042
     Dates: start: 20170825, end: 20170825
  9. PEGASPARGASE [Suspect]
     Active Substance: PEGASPARGASE
     Dosage: 2550 IU, UNK
     Route: 042
     Dates: start: 20171028, end: 20171028
  10. PEGASPARGASE [Suspect]
     Active Substance: PEGASPARGASE
     Dosage: 2400 IU, UNK
     Route: 042
     Dates: start: 20170929, end: 20170929
  11. CYTARABINE [Suspect]
     Active Substance: CYTARABINE
     Indication: Acute lymphocytic leukaemia
     Dosage: 30 MG, UNK
     Route: 037
     Dates: start: 20170822, end: 20170918
  12. CYTARABINE [Suspect]
     Active Substance: CYTARABINE
     Dosage: 4000 MG, UNK
     Route: 042
     Dates: start: 20171023, end: 20171024
  13. CYTARABINE [Suspect]
     Active Substance: CYTARABINE
     Dosage: 71 MG, UNK
     Route: 042
     Dates: start: 20170825, end: 20170927
  14. CYTARABINE [Suspect]
     Active Substance: CYTARABINE
     Dosage: 30 MG, UNK
     Route: 037
     Dates: start: 20171027, end: 20171027
  15. VINCRISTINE [Suspect]
     Active Substance: VINCRISTINE
     Indication: Acute lymphocytic leukaemia
     Dosage: 1.4 MG, UNK
     Route: 042
     Dates: start: 20170825, end: 20171006
  16. MERCAPTOPURINE [Suspect]
     Active Substance: MERCAPTOPURINE
     Indication: Acute lymphocytic leukaemia
     Dosage: 57 MG, UNK
     Route: 048
     Dates: start: 20170811, end: 20170928
  17. ETOPOSIDE [Suspect]
     Active Substance: ETOPOSIDE
     Indication: Acute lymphocytic leukaemia
     Dosage: 152 MG, UNK
     Route: 042
     Dates: start: 20171025, end: 20171027

REACTIONS (1)
  - Hypertriglyceridaemia [Not Recovered/Not Resolved]

NARRATIVE: CASE EVENT DATE: 20171025
